FAERS Safety Report 10784261 (Version 2)
Quarter: 2015Q1

REPORT INFORMATION
  Report Type: Report from Study
  Country: BR (occurrence: BR)
  Receive Date: 20150211
  Receipt Date: 20150306
  Transmission Date: 20150721
  Serious: Yes (Death, Other)
  Sender: FDA-Public Use
  Company Number: BR-ALEXION PHARMACEUTICALS INC-A201500419

PATIENT

DRUGS (1)
  1. SOLIRIS [Suspect]
     Active Substance: ECULIZUMAB
     Indication: HAEMOLYTIC URAEMIC SYNDROME
     Dosage: 300 MG, MONTHLY
     Route: 042
     Dates: start: 20140128

REACTIONS (3)
  - Tracheostomy [Unknown]
  - Septic shock [Fatal]
  - Pneumothorax [Unknown]

NARRATIVE: CASE EVENT DATE: 20150203
